FAERS Safety Report 18246305 (Version 1)
Quarter: 2020Q3

REPORT INFORMATION
  Report Type: Spontaneous
  Country: US (occurrence: US)
  Receive Date: 20200909
  Receipt Date: 20200909
  Transmission Date: 20201103
  Serious: Yes (Other)
  Sender: FDA-Public Use
  Company Number: US-BAYER-2020-187355

PATIENT
  Age: 24 Year
  Sex: Female

DRUGS (2)
  1. MIRENA [Suspect]
     Active Substance: LEVONORGESTREL
     Indication: CONTRACEPTION
     Dosage: 20 ?G PER DAY CONTINUOUSLY
     Route: 015
     Dates: end: 20200824
  2. MIRENA [Suspect]
     Active Substance: LEVONORGESTREL
     Indication: MENORRHAGIA
     Dosage: 20 ?G PER DAY CONTINUOUSLY
     Route: 015
     Dates: start: 20200714, end: 20200824

REACTIONS (8)
  - Procedural haemorrhage [None]
  - Device use issue [None]
  - Procedural pain [None]
  - Genital haemorrhage [None]
  - Abdominal pain lower [None]
  - Breast pain [Recovered/Resolved]
  - Migraine [None]
  - Device physical property issue [None]

NARRATIVE: CASE EVENT DATE: 2020
